FAERS Safety Report 5721108-4 (Version None)
Quarter: 2008Q2

REPORT INFORMATION
  Report Type: 
  Country: None (occurrence: None)
  Receive Date: 20080429
  Receipt Date: 20080422
  Transmission Date: 20081010
  Serious: Yes (Other)
  Sender: FDA-Public Use
  Company Number: A0688979A

PATIENT
  Sex: Male

DRUGS (1)
  1. ADVAIR HFA [Suspect]
     Indication: DRUG USE FOR UNKNOWN INDICATION
     Route: 055

REACTIONS (9)
  - CATARACT [None]
  - EYE PAIN [None]
  - HEADACHE [None]
  - ILL-DEFINED DISORDER [None]
  - MOUTH ULCERATION [None]
  - NASOPHARYNGITIS [None]
  - OPTIC NERVE INJURY [None]
  - VISION BLURRED [None]
  - VISUAL DISTURBANCE [None]
